FAERS Safety Report 13035917 (Version 3)
Quarter: 2017Q1

REPORT INFORMATION
  Report Type: Spontaneous
  Country: US (occurrence: US)
  Receive Date: 20161216
  Receipt Date: 20170103
  Transmission Date: 20170428
  Serious: Yes (Death, Hospitalization)
  Sender: FDA-Public Use
  Company Number: US-UNITED THERAPEUTICS-UNT-2016-018415

PATIENT
  Age: 69 Year
  Sex: Female
  Weight: 70.3 kg

DRUGS (2)
  1. REMODULIN [Suspect]
     Active Substance: TREPROSTINIL
     Indication: PULMONARY HYPERTENSION
     Dosage: 0.093 ?G/KG, CONTINUING
     Route: 041
     Dates: start: 20160822
  2. REMODULIN [Suspect]
     Active Substance: TREPROSTINIL
     Dosage: 0.117 ?G/KG, CONTINUING
     Route: 041

REACTIONS (6)
  - Dyspnoea [Unknown]
  - Acute kidney injury [Not Recovered/Not Resolved]
  - Pulmonary arterial hypertension [Not Recovered/Not Resolved]
  - Cough [Not Recovered/Not Resolved]
  - Cor pulmonale [Not Recovered/Not Resolved]
  - Disease progression [Fatal]

NARRATIVE: CASE EVENT DATE: 20161109
